FAERS Safety Report 8732430 (Version 2)
Quarter: 2015Q2

REPORT INFORMATION
  Report Type: Report from Study
  Country: US (occurrence: US)
  Receive Date: 20120820
  Receipt Date: 20150626
  Transmission Date: 20150821
  Serious: Yes (Death, Hospitalization, Other)
  Sender: FDA-Public Use
  Company Number: US-ROCHE-1097608

PATIENT
  Age: 48 Year
  Sex: Male

DRUGS (6)
  1. LIDOCAINE. [Concomitant]
     Active Substance: LIDOCAINE
     Route: 042
  2. ACTIVASE [Suspect]
     Active Substance: ALTEPLASE
     Indication: ACUTE MYOCARDIAL INFARCTION
     Dosage: 6 MG IV PUSH 94 MG ADDED TO IV FLUID
     Route: 042
  3. ISUPREL [Concomitant]
     Active Substance: ISOPROTERENOL HYDROCHLORIDE
     Dosage: 1 MG IN 250 CC DSW DRIP AT 100 CC AN HR
     Route: 065
  4. HEPARIN [Concomitant]
     Active Substance: HEPARIN SODIUM
  5. ISUPREL [Concomitant]
     Active Substance: ISOPROTERENOL HYDROCHLORIDE
     Route: 065
  6. DOPAMINE [Concomitant]
     Active Substance: DOPAMINE\DOPAMINE HYDROCHLORIDE
     Dosage: 400 MGS IN 500 CC D5W
     Route: 065

REACTIONS (4)
  - Arrhythmia [Unknown]
  - Cardiogenic shock [Fatal]
  - Endotracheal intubation [Unknown]
  - Respiratory arrest [Unknown]

NARRATIVE: CASE EVENT DATE: 19880726
